FAERS Safety Report 4861418-6 (Version None)
Quarter: 2005Q4

REPORT INFORMATION
  Report Type: 
  Country: None (occurrence: None)
  Receive Date: 20051129
  Receipt Date: 20050311
  Transmission Date: 20060501
  Serious: Yes (Disabling)
  Sender: FDA-Public Use
  Company Number: WAES 0503USA01881

PATIENT
  Age: 54 Year
  Sex: Female

DRUGS (4)
  1. FOSAMAX [Suspect]
     Indication: OSTEOPENIA
     Dosage: 35 MG/WKY/PO
     Route: 048
     Dates: start: 20050213, end: 20050227
  2. LEVOXYL [Concomitant]
  3. PREMARIN [Concomitant]
  4. VITAMINS (UNSPECIFIED) [Concomitant]

REACTIONS (2)
  - ARTHRALGIA [None]
  - MYALGIA [None]
